FAERS Safety Report 5508792-5 (Version None)
Quarter: 2007Q4

REPORT INFORMATION
  Report Type: 
  Country: None (occurrence: None)
  Receive Date: 20071107
  Receipt Date: 20071030
  Transmission Date: 20080405
  Serious: Yes (Other)
  Sender: FDA-Public Use
  Company Number: B0494330A

PATIENT
  Sex: Female

DRUGS (2)
  1. LAMICTAL [Suspect]
     Route: 048
     Dates: start: 20040101
  2. EFFEXOR [Concomitant]
     Dates: start: 19890101

REACTIONS (2)
  - SALIVARY HYPERSECRETION [None]
  - VISUAL ACUITY REDUCED [None]
